FAERS Safety Report 9917888 (Version 1)
Quarter: 2014Q1

REPORT INFORMATION
  Report Type: Report from Study
  Country: US (occurrence: US)
  Receive Date: 20140221
  Receipt Date: 20140221
  Transmission Date: 20141002
  Serious: Yes (Death)
  Sender: FDA-Public Use
  Company Number: US-ROCHE-1354390

PATIENT
  Sex: Male

DRUGS (7)
  1. XELODA [Suspect]
     Indication: COLON CANCER
     Dosage: 14 DAYS ON, 7 DAYS OFF
     Route: 048
  2. AVASTIN [Suspect]
     Indication: COLON CANCER
     Route: 042
  3. AVASTIN [Suspect]
     Route: 042
     Dates: start: 20130311
  4. AVASTIN [Suspect]
     Route: 042
     Dates: start: 20130415
  5. AVASTIN [Suspect]
     Route: 042
     Dates: start: 20130506
  6. AVASTIN [Suspect]
     Route: 042
     Dates: start: 20130529
  7. AVASTIN [Suspect]
     Route: 042
     Dates: start: 201306

REACTIONS (1)
  - Death [Fatal]
